FAERS Safety Report 13381051 (Version 1)
Quarter: 2017Q1

REPORT INFORMATION
  Report Type: Spontaneous
  Country: US (occurrence: US)
  Receive Date: 20170328
  Receipt Date: 20170328
  Transmission Date: 20170429
  Serious: No
  Sender: FDA-Public Use
  Company Number: None

PATIENT
  Age: 76 Year
  Sex: Female
  Weight: 51.76 kg

DRUGS (5)
  1. MECLIZINE [Concomitant]
     Active Substance: MECLIZINE HYDROCHLORIDE
  2. BRIMONIDINE [Concomitant]
     Active Substance: BRIMONIDINE TARTRATE
  3. LATANOPROST. [Concomitant]
     Active Substance: LATANOPROST
  4. PREDNISONE. [Suspect]
     Active Substance: PREDNISONE
     Indication: TEMPORAL ARTERITIS
     Dosage: 8MG = 3X1 = 3?5X1 = 5  ?A,M.  MOUTH
     Route: 048
     Dates: start: 20160806
  5. PREDNISONE. [Suspect]
     Active Substance: PREDNISONE
     Indication: AUTOIMMUNE DISORDER
     Dosage: 8MG = 3X1 = 3?5X1 = 5  ?A,M.  MOUTH
     Route: 048
     Dates: start: 20160806

REACTIONS (12)
  - Dizziness [None]
  - Confusional state [None]
  - Hair texture abnormal [None]
  - Dysphonia [None]
  - Asthenia [None]
  - Peripheral swelling [None]
  - Pain in extremity [None]
  - Dandruff [None]
  - Weight increased [None]
  - Burning sensation [None]
  - Alopecia [None]
  - Cushingoid [None]

NARRATIVE: CASE EVENT DATE: 20160811
